FAERS Safety Report 17487534 (Version 2)
Quarter: 2020Q3

REPORT INFORMATION
  Report Type: Spontaneous
  Country: US (occurrence: US)
  Receive Date: 20200303
  Receipt Date: 20200710
  Transmission Date: 20201102
  Serious: Yes (Other)
  Sender: FDA-Public Use
  Company Number: US-BAUSCH-BL-2020-006233

PATIENT
  Age: 58 Year
  Sex: Female

DRUGS (6)
  1. FLUOROURACIL CREAM 5% [Suspect]
     Active Substance: FLUOROURACIL
     Indication: SQUAMOUS CELL CARCINOMA
     Dosage: STOPPED IN MIDDLE OF FEB/2020
     Route: 061
     Dates: start: 20200116, end: 202002
  2. KLONOPIN [Concomitant]
     Active Substance: CLONAZEPAM
     Indication: PRODUCT USED FOR UNKNOWN INDICATION
  3. METOPROLOL. [Concomitant]
     Active Substance: METOPROLOL
     Indication: PRODUCT USED FOR UNKNOWN INDICATION
     Route: 048
  4. FLUOROURACIL CREAM 5% [Suspect]
     Active Substance: FLUOROURACIL
     Route: 061
     Dates: start: 202005, end: 202005
  5. FLUROURACIL [Suspect]
     Active Substance: FLUOROURACIL
     Indication: SQUAMOUS CELL CARCINOMA
     Route: 061
     Dates: start: 20200528, end: 20200609
  6. LEVOTHYROXINE. [Concomitant]
     Active Substance: LEVOTHYROXINE
     Indication: PRODUCT USED FOR UNKNOWN INDICATION

REACTIONS (17)
  - Oral pain [Recovered/Resolved]
  - Tinnitus [Not Recovered/Not Resolved]
  - Faeces soft [Recovered/Resolved]
  - Heart rate abnormal [Unknown]
  - Ear swelling [Unknown]
  - Fatigue [Not Recovered/Not Resolved]
  - Malaise [Unknown]
  - Abnormal faeces [Recovered/Resolved]
  - Cardiac disorder [Unknown]
  - Periorbital swelling [Recovered/Resolved]
  - Ototoxicity [Unknown]
  - Hypoacusis [Not Recovered/Not Resolved]
  - Frequent bowel movements [Recovered/Resolved]
  - Neuralgia [Unknown]
  - Contusion [Recovered/Resolved]
  - Ear disorder [Unknown]
  - Eye swelling [Recovered/Resolved]

NARRATIVE: CASE EVENT DATE: 2020
